FAERS Safety Report 7460661-X (Version None)
Quarter: 2011Q2

REPORT INFORMATION
  Report Type: 
  Country: None (occurrence: None)
  Receive Date: 20110505
  Receipt Date: 20110502
  Transmission Date: 20111010
  Serious: Yes (Other)
  Sender: FDA-Public Use
  Company Number: PR-ABBOTT-11P-131-0716561-00

PATIENT
  Sex: Male
  Weight: 68.1 kg

DRUGS (1)
  1. HUMIRA [Suspect]
     Indication: PSORIATIC ARTHROPATHY
     Route: 058
     Dates: start: 20070101

REACTIONS (7)
  - RESPIRATORY TRACT CONGESTION [None]
  - APHONIA [None]
  - DYSPNOEA [None]
  - COUGH [None]
  - FEELING HOT [None]
  - HEADACHE [None]
  - FLUSHING [None]
